FAERS Safety Report 4616121-4 (Version None)
Quarter: 2005Q1

REPORT INFORMATION
  Report Type: 
  Country: None (occurrence: None)
  Receive Date: 20050323
  Receipt Date: 20050310
  Transmission Date: 20050727
  Serious: Yes (Other)
  Sender: FDA-Public Use
  Company Number: PT-JNJFOC-20050303036

PATIENT
  Sex: Female

DRUGS (4)
  1. RISPERDAL CONSTA [Suspect]
     Indication: BIPOLAR DISORDER
     Dosage: DOSE STATUS: TEMPORARILY INTERRUPTED
     Route: 030
     Dates: start: 20050304
  2. DIVALPROATE [Concomitant]
     Indication: BIPOLAR DISORDER
     Dosage: TOTAL DAILY DOSE: 20
     Route: 049
  3. OLANZAPINE [Concomitant]
     Indication: BIPOLAR DISORDER
     Dosage: TOTAL DAILY DOSE: 20
     Route: 049
  4. DIAZEPAM [Concomitant]
     Indication: BIPOLAR DISORDER
     Dosage: TOTAL DAILY DOSE: 15
     Route: 049

REACTIONS (4)
  - BLISTER [None]
  - ERYTHEMA [None]
  - FACE OEDEMA [None]
  - HYPERSENSITIVITY [None]
